FAERS Safety Report 8536927-9 (Version None)
Quarter: 2012Q3

REPORT INFORMATION
  Report Type: 
  Country: None (occurrence: None)
  Receive Date: 20120725
  Receipt Date: 20120723
  Transmission Date: 20120928
  Serious: No
  Sender: FDA-Public Use
  Company Number: US-TEVA-349899USA

PATIENT
  Sex: Female

DRUGS (4)
  1. PROAIR HFA [Suspect]
     Indication: ASTHMA
  2. PROAIR HFA [Suspect]
     Indication: RESPIRATORY DISTRESS
  3. ADVAIR DISKUS 100/50 [Concomitant]
     Indication: RESPIRATORY DISTRESS
  4. ADVAIR DISKUS 100/50 [Concomitant]
     Indication: ASTHMA

REACTIONS (1)
  - DYSPNOEA [None]
